FAERS Safety Report 4620894-4 (Version None)
Quarter: 2005Q1

REPORT INFORMATION
  Report Type: 
  Country: None (occurrence: None)
  Receive Date: 20050325
  Receipt Date: 20050321
  Transmission Date: 20050727
  Serious: Yes (Hospitalization)
  Sender: FDA-Public Use
  Company Number: 2005-125542-NL

PATIENT
  Age: 57 Year
  Sex: Male

DRUGS (1)
  1. VECURONIUM BROMIDE [Suspect]
     Indication: ANAESTHESIA
     Dosage: 6 MG ONCE, INTRAVENOUS (NOS)
     Route: 042
     Dates: start: 20050222, end: 20050222

REACTIONS (1)
  - ANAESTHETIC COMPLICATION NEUROLOGICAL [None]
